FAERS Safety Report 4983315-8 (Version None)
Quarter: 2006Q2

REPORT INFORMATION
  Report Type: 
  Country: None (occurrence: None)
  Receive Date: 20060426
  Receipt Date: 20050708
  Transmission Date: 20061013
  Serious: Yes (Hospitalization, Disabling)
  Sender: FDA-Public Use
  Company Number: US-MERCK-0507USA01274

PATIENT
  Age: 60 Year
  Sex: Female
  Weight: 108 kg

DRUGS (1)
  1. VIOXX [Suspect]
     Indication: ARTHRITIS
     Route: 048
     Dates: start: 20010301, end: 20040927

REACTIONS (21)
  - ANGINA PECTORIS [None]
  - ANGINA UNSTABLE [None]
  - ARTERIAL RESTENOSIS [None]
  - ARTERIOSCLEROSIS CORONARY ARTERY [None]
  - ARTHROPATHY [None]
  - BREAST DISORDER [None]
  - CHEST DISCOMFORT [None]
  - CHEST PAIN [None]
  - CORONARY ARTERY DISEASE [None]
  - FALL [None]
  - HYPERLIPIDAEMIA [None]
  - HYPERTENSION [None]
  - MYOCARDIAL INFARCTION [None]
  - MYOCARDIAL ISCHAEMIA [None]
  - PAGET'S DISEASE OF THE BREAST [None]
  - PHLEBITIS SUPERFICIAL [None]
  - PSORIASIS [None]
  - SINUS BRADYCARDIA [None]
  - SUPRAVENTRICULAR TACHYCARDIA [None]
  - SYNCOPE [None]
  - VERTIGO [None]
